FAERS Safety Report 5740137-8 (Version None)
Quarter: 2008Q2

REPORT INFORMATION
  Report Type: 
  Country: None (occurrence: None)
  Receive Date: 20080516
  Receipt Date: 20080514
  Transmission Date: 20081010
  Serious: Yes (Hospitalization)
  Sender: FDA-Public Use
  Company Number: US-BRISTOL-MYERS SQUIBB COMPANY-14192074

PATIENT
  Age: 70 Year
  Sex: Female
  Weight: 106 kg

DRUGS (1)
  1. TEQUIN [Suspect]

REACTIONS (1)
  - PNEUMONIA [None]
